FAERS Safety Report 8340799 (Version 3)
Quarter: 2012Q4

REPORT INFORMATION
  Report Type: 
  Country: US (occurrence: US)
  Receive Date: 20120118
  Receipt Date: 20121122
  Transmission Date: 20130627
  Serious: Yes (Death, Hospitalization)
  Sender: FDA-Public Use
  Company Number: US-BIOGENIDEC-2012BI001459

PATIENT
  Age: 37 Year
  Sex: Male

DRUGS (1)
  1. TYSABRI [Suspect]
     Indication: MULTIPLE SCLEROSIS
     Route: 042
     Dates: start: 20110622, end: 20111123

REACTIONS (3)
  - Multiple sclerosis relapse [Unknown]
  - Neurodegenerative disorder [Fatal]
  - Pneumonia aspiration [Unknown]
